FAERS Safety Report 6389541-8 (Version None)
Quarter: 2009Q4

REPORT INFORMATION
  Report Type: 
  Country: None (occurrence: None)
  Receive Date: 20091006
  Receipt Date: 20090928
  Transmission Date: 20100525
  Serious: Yes (Other)
  Sender: FDA-Public Use
  Company Number: US-AMGEN-QUU366510

PATIENT
  Sex: Male

DRUGS (29)
  1. ARANESP [Suspect]
     Indication: RENAL FAILURE CHRONIC
     Dates: start: 20090927, end: 20090927
  2. ALBUTEROL [Concomitant]
  3. CARDURA [Concomitant]
  4. COLACE [Concomitant]
  5. DILAUDID [Concomitant]
  6. DULCOLAX [Concomitant]
  7. FERROUS SULFATE TAB [Concomitant]
  8. POTASSIUM CHLORIDE [Concomitant]
  9. LOVENOX [Concomitant]
  10. PERCOCET [Concomitant]
  11. REMERON [Concomitant]
  12. REQUIP [Concomitant]
  13. RESTORIL [Concomitant]
  14. ROCEPHIN [Concomitant]
  15. SYNTHROID [Concomitant]
  16. TEGRETOL [Concomitant]
  17. TOPAMAX [Concomitant]
  18. TYLENOL (CAPLET) [Concomitant]
  19. ULTIVA [Concomitant]
  20. VALIUM [Concomitant]
  21. ZANTAC [Concomitant]
  22. ZOFRAN [Concomitant]
  23. ZOLOFT [Concomitant]
  24. ZOSYN [Concomitant]
  25. CRESTOR [Concomitant]
  26. MILK OF MAGNESIA TAB [Concomitant]
  27. SODIUM BICARBONATE IN PLASTIC CONTAINER [Concomitant]
  28. VANCOMYCIN [Concomitant]
  29. INSULIN [Concomitant]

REACTIONS (1)
  - ACCIDENTAL OVERDOSE [None]
